FAERS Safety Report 7621333-1 (Version None)
Quarter: 2011Q3

REPORT INFORMATION
  Report Type: 
  Country: None (occurrence: None)
  Receive Date: 20110719
  Receipt Date: 20110704
  Transmission Date: 20111222
  Serious: Yes (Hospitalization, Other)
  Sender: FDA-Public Use
  Company Number: MX-BAYER-2011-048454

PATIENT
  Age: 47 Year
  Sex: Male
  Weight: 76 kg

DRUGS (5)
  1. CLOPIDOGREL [Interacting]
     Indication: ACUTE CORONARY SYNDROME
     Route: 048
  2. RIVAROXABAN [Interacting]
     Dosage: DOSAGE FORM: TABLET
     Route: 048
     Dates: start: 20100401, end: 20110508
  3. RIVAROXABAN [Interacting]
     Indication: ACUTE CORONARY SYNDROME
     Dosage: DOSAGE FORM: TABLET
     Route: 048
     Dates: start: 20100331, end: 20100331
  4. RIVAROXABAN [Interacting]
     Dosage: DOSAGE FORM: TABLET
     Route: 048
     Dates: start: 20110519
  5. ACETYLSALICYLIC ACID SRT [Suspect]
     Indication: ACUTE CORONARY SYNDROME
     Route: 048

REACTIONS (2)
  - PANCREATITIS ACUTE [None]
  - UPPER GASTROINTESTINAL HAEMORRHAGE [None]
